FAERS Safety Report 6388935-4 (Version None)
Quarter: 2009Q4

REPORT INFORMATION
  Report Type: 
  Country: None (occurrence: None)
  Receive Date: 20091001
  Receipt Date: 20090921
  Transmission Date: 20100525
  Serious: Yes (Other)
  Sender: FDA-Public Use
  Company Number: GB-1170992

PATIENT
  Age: 68 Year
  Sex: Female

DRUGS (5)
  1. FLUORESCITE [Suspect]
     Indication: ANGIOGRAM RETINA
     Dosage: 4 ML INTRAVENOUS BOLUS
     Route: 040
     Dates: start: 20090827, end: 20090827
  2. ASPIRIN [Concomitant]
  3. BENDROFLUAZIDE (BENDROFLUMETHIAZIDE) [Concomitant]
  4. FUROSEMIDE [Concomitant]
  5. SIMVASTATIN [Concomitant]

REACTIONS (2)
  - BLISTER [None]
  - URTICARIA [None]
